FAERS Safety Report 21897580 (Version 5)
Quarter: 2024Q3

REPORT INFORMATION
  Report Type: Spontaneous
  Country: US (occurrence: US)
  Receive Date: 20230123
  Receipt Date: 20240731
  Transmission Date: 20241017
  Serious: Yes (Hospitalization)
  Sender: PFIZER
  Company Number: US-PFIZER INC-202101870171

PATIENT
  Age: 75 Year
  Sex: Female
  Weight: 57.143 kg

DRUGS (20)
  1. XELJANZ XR [Suspect]
     Active Substance: TOFACITINIB CITRATE
     Indication: Rheumatoid arthritis
     Dosage: 11 MG, 1X/DAY
  2. LOSARTAN POTASSIUM [Concomitant]
     Active Substance: LOSARTAN POTASSIUM
     Indication: Blood pressure abnormal
     Dosage: (I AM TAKING IT EVERY DAY, ONE TABLET EVERYDAY AND I TAKE IT IN THE MORNING.)
  3. SPIRONOLACTONE [Concomitant]
     Active Substance: SPIRONOLACTONE
     Dosage: (25 MILLIGRAM, ONE TABLET EVERY MORNING)
  4. CYANOCOBALAMIN [Concomitant]
     Active Substance: CYANOCOBALAMIN
     Dosage: (ONE IN THE MORNING)
  5. PANTOPRAZOLE SODIUM [Concomitant]
     Active Substance: PANTOPRAZOLE SODIUM
     Dosage: (40 MILLIGRAM, EVERY MORNING)
  6. NIFEDIPINE [Concomitant]
     Active Substance: NIFEDIPINE
     Dosage: (30 MILLIGRAMS, EVERY MORNING)
  7. ALENDRONATE [Concomitant]
     Active Substance: ALENDRONATE SODIUM
     Dosage: ONE TABLET EVERY 7 DAYS, ON FRIDAY
  8. LEVOTHYROXINE [Concomitant]
     Active Substance: LEVOTHYROXINE\LEVOTHYROXINE SODIUM
     Dosage: (I TAKE IT ONE TABLET EVERY DAY.)
  9. VENLAFAXINE [Concomitant]
     Active Substance: VENLAFAXINE HYDROCHLORIDE
     Dosage: 37.5 MG
  10. CARVEDILOL [Concomitant]
     Active Substance: CARVEDILOL
     Dosage: (I TAKE ONE, TWICE A DAY)
  11. COENZYME Q10 [Concomitant]
     Active Substance: DIETARY SUPPLEMENT\UBIDECARENONE
     Dosage: (200 MILLIGRAMS, ONE AT NIGHT)
  12. MELATONIN [Concomitant]
     Active Substance: MELATONIN
     Dosage: (10 MILLIGRAMS, AT BEDTIME)
  13. HYDROXYZINE HYDROCHLORIDE [Concomitant]
     Active Substance: HYDROXYZINE HYDROCHLORIDE
     Dosage: (25 MILLIGRAMS, ONE AT NIGHT)
  14. TRAZODONE [Concomitant]
     Active Substance: TRAZODONE HYDROCHLORIDE
     Dosage: (I TAKE IT ONE TABLET EVERY EVENING)
  15. TRAMADOL [Concomitant]
     Active Substance: TRAMADOL\TRAMADOL HYDROCHLORIDE
     Indication: Pain
     Dosage: (I NEED TO TAKE ONE TABLET EVERY 6 HOURS AS NEEDED FOR PAIN.)
  16. SOLIFENACIN [Concomitant]
     Active Substance: SOLIFENACIN
     Dosage: (I TAKE ONE AT NIGHT.)
  17. PRALUENT [Concomitant]
     Active Substance: ALIROCUMAB
     Dosage: (75 MILLIGRAMS, EVERY TWO WEEKS)
  18. ASPIRIN [Concomitant]
     Active Substance: ASPIRIN
     Dosage: (I TAKE ONE IN THE MORNING)
  19. VITAMIN D3 [Concomitant]
     Active Substance: CHOLECALCIFEROL
     Dosage: (THIS KIND OF ^INFERENCES^ IS 125 MCG)
  20. CALCIUM [Concomitant]
     Active Substance: CALCIUM
     Dosage: 600 MG, 2X/DAY

REACTIONS (2)
  - Eczema [Recovered/Resolved]
  - Dysphonia [Unknown]
